FAERS Safety Report 4813647-5 (Version None)
Quarter: 2005Q4

REPORT INFORMATION
  Report Type: 
  Country: None (occurrence: None)
  Receive Date: 20051028
  Receipt Date: 20050304
  Transmission Date: 20060501
  Serious: No
  Sender: FDA-Public Use
  Company Number: US-GLAXOSMITHKLINE-A0548395A

PATIENT
  Age: 80 Year
  Sex: Female

DRUGS (8)
  1. ADVAIR DISKUS 100/50 [Suspect]
     Indication: EMPHYSEMA
     Route: 055
     Dates: start: 20050302
  2. VERAPAMIL [Concomitant]
  3. ASPIRIN [Concomitant]
  4. LASIX [Concomitant]
  5. PRAVACHOL [Concomitant]
  6. VALIUM [Concomitant]
  7. POTASSIUM CHLORIDE [Concomitant]
  8. VITAMINS [Concomitant]

REACTIONS (1)
  - MYALGIA [None]
